FAERS Safety Report 21158492 (Version 1)
Quarter: 2022Q3

REPORT INFORMATION
  Report Type: Report from Study
  Country: BR (occurrence: BR)
  Receive Date: 20220801
  Receipt Date: 20220801
  Transmission Date: 20221026
  Serious: Yes (Disabling, Other)
  Sender: FDA-Public Use
  Company Number: BR-ABBVIE-22K-020-4487590-00

PATIENT
  Sex: Female
  Weight: 89 kg

DRUGS (1)
  1. SKYRIZI [Suspect]
     Active Substance: RISANKIZUMAB-RZAA
     Indication: Psoriasis
     Route: 058
     Dates: start: 20210513

REACTIONS (3)
  - Carpal tunnel syndrome [Recovering/Resolving]
  - Mobility decreased [Unknown]
  - Bedridden [Unknown]
